FAERS Safety Report 9391787 (Version 2)
Quarter: 2013Q3

REPORT INFORMATION
  Report Type: Spontaneous
  Country: US (occurrence: US)
  Receive Date: 20130709
  Receipt Date: 20130813
  Transmission Date: 20140515
  Serious: Yes (Hospitalization)
  Sender: FDA-Public Use
  Company Number: PHEH2013US014410

PATIENT
  Sex: Female

DRUGS (6)
  1. EXFORGE [Suspect]
     Indication: HYPERTENSION
     Dosage: 1 DF(160MG VALS /5MG AMLO), QD
     Route: 048
     Dates: start: 20130201
  2. LORATADINE [Concomitant]
     Indication: SNEEZING
     Dosage: UNK UKN, QD
  3. LORATADINE [Concomitant]
     Indication: OROPHARYNGEAL PAIN
  4. CRESTOR [Concomitant]
     Indication: BLOOD CHOLESTEROL
  5. FLONASE [Concomitant]
     Indication: HYPERSENSITIVITY
  6. ZANTAC [Concomitant]
     Indication: ABDOMINAL DISCOMFORT
     Dosage: UNK UKN, PRN

REACTIONS (6)
  - Chills [Unknown]
  - Feeling abnormal [Unknown]
  - Vertigo [Unknown]
  - Blood pressure increased [Unknown]
  - Abdominal pain upper [Unknown]
  - Wrong technique in drug usage process [Unknown]
